FAERS Safety Report 10074333 (Version 1)
Quarter: 2014Q2

REPORT INFORMATION
  Report Type: Spontaneous
  Country: US (occurrence: US)
  Receive Date: 20140412
  Receipt Date: 20140412
  Transmission Date: 20141212
  Serious: No
  Sender: FDA-Public Use
  Company Number: US-009507513-1404USA003474

PATIENT
  Sex: Female

DRUGS (2)
  1. INTRONA [Suspect]
     Indication: MALIGNANT MELANOMA
     Dosage: 18 MIU / THREE TIMES A WEEK
     Dates: start: 20131004
  2. LEXAPRO [Concomitant]

REACTIONS (2)
  - Dizziness [Not Recovered/Not Resolved]
  - Incorrect product storage [Unknown]
